FAERS Safety Report 12915859 (Version 1)
Quarter: 2016Q4

REPORT INFORMATION
  Report Type: Spontaneous
  Country: FR (occurrence: FR)
  Receive Date: 20161107
  Receipt Date: 20161107
  Transmission Date: 20170207
  Serious: Yes (Other)
  Sender: FDA-Public Use
  Company Number: FR-AMGEN-FRASP2016154013

PATIENT
  Age: 38 Year
  Sex: Male

DRUGS (6)
  1. TOPALGIC LP [Suspect]
     Active Substance: TRAMADOL
     Indication: PRODUCT USED FOR UNKNOWN INDICATION
     Dosage: 200 MG, 1X/DAY IN THE MORNNG AND IN THE EVENING AS NEEDED
     Route: 048
  2. ENBREL [Suspect]
     Active Substance: ETANERCEPT
     Indication: ANKYLOSING SPONDYLITIS
  3. STILNOX [Concomitant]
     Active Substance: ZOLPIDEM TARTRATE
  4. INEXIUM [Concomitant]
     Active Substance: ESOMEPRAZOLE
  5. LYRICA [Concomitant]
     Active Substance: PREGABALIN
  6. ENBREL [Suspect]
     Active Substance: ETANERCEPT
     Indication: CROHN^S DISEASE
     Dosage: 50 MG, WEEKLY
     Route: 058
     Dates: start: 201602, end: 20160916

REACTIONS (6)
  - Seizure [Recovered/Resolved]
  - Product use issue [Unknown]
  - Anxiety [Unknown]
  - Fatigue [Unknown]
  - Postictal state [Recovered/Resolved]
  - Chest pain [Unknown]

NARRATIVE: CASE EVENT DATE: 201602
